FAERS Safety Report 6070362-0 (Version None)
Quarter: 2009Q1

REPORT INFORMATION
  Report Type: 
  Country: None (occurrence: None)
  Receive Date: 20090209
  Receipt Date: 20090202
  Transmission Date: 20090719
  Serious: Yes (Hospitalization, Other)
  Sender: FDA-Public Use
  Company Number: US-ELI_LILLY_AND_COMPANY-US200901000554

PATIENT
  Sex: Female

DRUGS (3)
  1. HUMALOG MIX 75/25 [Suspect]
     Indication: TYPE 1 DIABETES MELLITUS
     Dosage: 40 U, EACH MORNING
  2. LANTUS [Concomitant]
     Indication: TYPE 1 DIABETES MELLITUS
     Dosage: 13 U, EACH EVENING
  3. LANTUS [Concomitant]
     Dosage: 19 U, EACH EVENING

REACTIONS (6)
  - BLOOD GLUCOSE DECREASED [None]
  - DIALYSIS [None]
  - PORTAL SHUNT [None]
  - VASCULAR GRAFT [None]
  - VASCULAR OPERATION [None]
  - VASCULAR PROCEDURE COMPLICATION [None]
